FAERS Safety Report 13163353 (Version 1)
Quarter: 2017Q1

REPORT INFORMATION
  Report Type: Spontaneous
  Country: US (occurrence: US)
  Receive Date: 20170129
  Receipt Date: 20170129
  Transmission Date: 20170428
  Serious: Yes (Life-Threatening, Hospitalization, Other)
  Sender: FDA-Public Use
  Company Number: None

PATIENT
  Age: 52 Year
  Sex: Male
  Weight: 90 kg

DRUGS (1)
  1. AMOXIL [Suspect]
     Active Substance: AMOXICILLIN
     Indication: PHARYNGITIS
     Route: 002
     Dates: start: 19900920, end: 19900922

REACTIONS (7)
  - Documented hypersensitivity to administered product [None]
  - Incorrect dose administered [None]
  - Limb injury [None]
  - Hypersensitivity [None]
  - Fracture [None]
  - Abasia [None]
  - Muscle twitching [None]

NARRATIVE: CASE EVENT DATE: 19900920
